FAERS Safety Report 16878446 (Version 1)
Quarter: 2019Q4

REPORT INFORMATION
  Report Type: Spontaneous
  Country: US (occurrence: US)
  Receive Date: 20191002
  Receipt Date: 20191002
  Transmission Date: 20200122
  Serious: Yes (Other)
  Sender: FDA-Public Use
  Company Number: US-AMERICAN REGENT INC-2019002146

PATIENT
  Age: 7 Month
  Sex: Female

DRUGS (2)
  1. GLYCOPYRROLATE INJECTION, USP (4601-25) [Suspect]
     Active Substance: GLYCOPYRROLATE
     Indication: SALIVARY HYPERSECRETION
     Dosage: UNK
     Route: 065
  2. GLYCOPYRROLATE INJECTION, USP (4601-25) [Suspect]
     Active Substance: GLYCOPYRROLATE
     Dosage: UNK
     Route: 065

REACTIONS (3)
  - Product use in unapproved indication [Unknown]
  - Respiratory distress [Unknown]
  - Bronchial secretion retention [Unknown]
